FAERS Safety Report 7062645-2 (Version None)
Quarter: 2010Q4

REPORT INFORMATION
  Report Type: 
  Country: None (occurrence: None)
  Receive Date: 20101026
  Receipt Date: 20091201
  Transmission Date: 20110411
  Serious: No
  Sender: FDA-Public Use
  Company Number: US-PFIZER INC-2009283198

PATIENT
  Sex: Male
  Weight: 93.4 kg

DRUGS (2)
  1. LIPITOR [Suspect]
     Indication: BLOOD CHOLESTEROL INCREASED
     Dosage: 40 MG, 1X/DAY
     Route: 048
     Dates: start: 20090901, end: 20091003
  2. FOSINOPRIL [Concomitant]
     Dosage: 40 MG, UNK

REACTIONS (3)
  - BLOOD PRESSURE INCREASED [None]
  - EPISTAXIS [None]
  - WHEEZING [None]
